FAERS Safety Report 21661360 (Version 1)
Quarter: 2022Q4

REPORT INFORMATION
  Report Type: Spontaneous
  Country: US (occurrence: US)
  Receive Date: 20221130
  Receipt Date: 20221130
  Transmission Date: 20230113
  Serious: No
  Sender: FDA-Public Use
  Company Number: US-JNJFOC-20221147898

PATIENT
  Age: 16 Year
  Sex: Male

DRUGS (2)
  1. RISPERDAL [Suspect]
     Active Substance: RISPERIDONE
     Indication: Product used for unknown indication
     Dosage: X1
     Route: 048
     Dates: start: 200509, end: 20050921
  2. RISPERDAL [Suspect]
     Active Substance: RISPERIDONE
     Indication: Aggression
     Route: 048

REACTIONS (3)
  - Treatment noncompliance [Unknown]
  - Constipation [Not Recovered/Not Resolved]
  - Enuresis [Not Recovered/Not Resolved]

NARRATIVE: CASE EVENT DATE: 20050901
